FAERS Safety Report 13360407 (Version 1)
Quarter: 2017Q1

REPORT INFORMATION
  Report Type: Spontaneous
  Country: US (occurrence: US)
  Receive Date: 20170322
  Receipt Date: 20170322
  Transmission Date: 20170429
  Serious: No
  Sender: FDA-Public Use
  Company Number: US-BAYER-2017-054701

PATIENT
  Age: 78 Year
  Sex: Male

DRUGS (1)
  1. EOVIST [Suspect]
     Active Substance: GADOXETATE DISODIUM
     Dosage: 10 ML, ONCE
     Route: 042
     Dates: start: 20170321, end: 20170321

REACTIONS (1)
  - Urticaria [None]

NARRATIVE: CASE EVENT DATE: 20170321
